FAERS Safety Report 8532289-1 (Version None)
Quarter: 2012Q3

REPORT INFORMATION
  Report Type: 
  Country: None (occurrence: None)
  Receive Date: 20120724
  Receipt Date: 20120712
  Transmission Date: 20120928
  Serious: Yes (Other)
  Sender: FDA-Public Use
  Company Number: BR-BRISTOL-MYERS SQUIBB COMPANY-16766743

PATIENT
  Age: 85 Year
  Sex: Female

DRUGS (1)
  1. IRBESARTAN [Suspect]
     Dosage: COATED TABS

REACTIONS (3)
  - JOINT INJURY [None]
  - FEMUR FRACTURE [None]
  - FALL [None]
